FAERS Safety Report 16107609 (Version 1)
Quarter: 2019Q1

REPORT INFORMATION
  Report Type: Report from Study
  Country: ES (occurrence: ES)
  Receive Date: 20190322
  Receipt Date: 20190322
  Transmission Date: 20190418
  Serious: Yes (Hospitalization)
  Sender: FDA-Public Use
  Company Number: ES-TEVA-2019-ES-1026776

PATIENT
  Age: 72 Year
  Sex: Male

DRUGS (5)
  1. HIDROXICARBAMIDA (316A) [Concomitant]
     Indication: POLYCYTHAEMIA VERA
     Dosage: 200 MILLIGRAM DAILY;
     Route: 048
     Dates: start: 201411
  2. PREDNISONA (886A) [Suspect]
     Active Substance: PREDNISONE
     Indication: PROPHYLAXIS AGAINST TRANSPLANT REJECTION
     Dosage: 5 MILLIGRAM DAILY;
     Route: 048
     Dates: start: 20150522
  3. MANIDIPINO DIHIDROCLORURO (2841DH) [Concomitant]
     Indication: HYPERTENSION
     Dosage: 20 MILLIGRAM DAILY;
     Route: 048
     Dates: start: 201710
  4. DOXAZOSINA (2387A) [Concomitant]
     Active Substance: DOXAZOSIN MESYLATE
     Indication: HYPERTENSION
     Dosage: 16 MILLIGRAM DAILY;
     Route: 048
     Dates: start: 20150529
  5. TACROLIMUS (2694A) [Interacting]
     Active Substance: TACROLIMUS
     Indication: PROPHYLAXIS AGAINST TRANSPLANT REJECTION
     Dosage: 5 MILLIGRAM DAILY;
     Route: 048
     Dates: start: 20150430

REACTIONS (2)
  - Pneumonia [Recovered/Resolved]
  - Drug interaction [Unknown]

NARRATIVE: CASE EVENT DATE: 201810
